FAERS Safety Report 5695714-X (Version None)
Quarter: 2008Q2

REPORT INFORMATION
  Report Type: 
  Country: None (occurrence: None)
  Receive Date: 20080403
  Receipt Date: 20080317
  Transmission Date: 20081010
  Serious: Yes (Other)
  Sender: FDA-Public Use
  Company Number: 2008S1003344

PATIENT
  Age: 15 Year
  Sex: Male
  Weight: 56.6996 kg

DRUGS (2)
  1. AMNESTEEM [Suspect]
     Indication: ACNE
     Dosage: 40 MG; DAILY; ORAL
     Route: 048
     Dates: start: 20080103, end: 20080210
  2. CONCERTA [Concomitant]

REACTIONS (1)
  - SUICIDAL IDEATION [None]
